FAERS Safety Report 15731744 (Version 1)
Quarter: 2018Q4

REPORT INFORMATION
  Report Type: Spontaneous
  Country: US (occurrence: US)
  Receive Date: 20181217
  Receipt Date: 20181217
  Transmission Date: 20190205
  Serious: No
  Sender: FDA-Public Use
  Company Number: US-PFIZER INC-2018519605

PATIENT
  Age: 77 Year
  Sex: Male

DRUGS (1)
  1. EUCRISA [Suspect]
     Active Substance: CRISABOROLE
     Indication: RASH
     Dosage: UNK (TWICE A DAY FOR ONE WEEK, THEN AS NEEDED AS DIRECTED)
     Route: 061

REACTIONS (2)
  - Drug ineffective [Unknown]
  - Erythema [Unknown]
